FAERS Safety Report 6382442-0 (Version None)
Quarter: 2009Q3

REPORT INFORMATION
  Report Type: 
  Country: None (occurrence: None)
  Receive Date: 20090928
  Receipt Date: 20090928
  Transmission Date: 20100115
  Serious: Yes (Hospitalization)
  Sender: FDA-Public Use
  Company Number: None

PATIENT
  Sex: Female
  Weight: 73.3 kg

DRUGS (3)
  1. GEMCITABINE HCL [Suspect]
     Dosage: 2200 MG
  2. LASIX [Concomitant]
  3. LISINOPRIL [Concomitant]

REACTIONS (8)
  - ANAEMIA [None]
  - ANGIOEDEMA [None]
  - ENDOMETRIAL CANCER RECURRENT [None]
  - FLUID RETENTION [None]
  - HYPOKALAEMIA [None]
  - PLEURAL EFFUSION [None]
  - THROMBOCYTOPENIA [None]
  - URINARY TRACT INFECTION [None]
